FAERS Safety Report 19294700 (Version 1)
Quarter: 2021Q2

REPORT INFORMATION
  Report Type: Spontaneous
  Country: US (occurrence: US)
  Receive Date: 20210524
  Receipt Date: 20210524
  Transmission Date: 20210717
  Serious: No
  Sender: FDA-Public Use
  Company Number: US-ORGANON-O2105USA001283

PATIENT
  Sex: Female

DRUGS (1)
  1. NUVARING [Suspect]
     Active Substance: ETHINYL ESTRADIOL\ETONOGESTREL
     Indication: MENSTRUAL CYCLE MANAGEMENT
     Dosage: 012MG/0.015MG, 1 RING(3 RINGS)
     Route: 067

REACTIONS (3)
  - Suspected product quality issue [Unknown]
  - Product use in unapproved indication [Unknown]
  - Device expulsion [Unknown]
